FAERS Safety Report 6788881-8 (Version None)
Quarter: 2010Q2

REPORT INFORMATION
  Report Type: 
  Country: None (occurrence: None)
  Receive Date: 20100621
  Receipt Date: 20100408
  Transmission Date: 20101027
  Serious: Yes (Hospitalization)
  Sender: FDA-Public Use
  Company Number: UTC-001004

PATIENT
  Age: 74 Year
  Sex: Female
  Weight: 81.6 kg

DRUGS (4)
  1. TYVASO [Suspect]
     Indication: PULMONARY ARTERIAL HYPERTENSION
     Dosage: INHALATION
     Route: 055
     Dates: start: 20100321
  2. ADCIRCA (TADALAFIL) [Concomitant]
  3. COUMADIN [Concomitant]
  4. ASPIRIN [Concomitant]

REACTIONS (5)
  - BODY TEMPERATURE INCREASED [None]
  - CHILLS [None]
  - EPISTAXIS [None]
  - PNEUMONIA [None]
  - URINARY TRACT INFECTION [None]
